FAERS Safety Report 6735153-3 (Version None)
Quarter: 2010Q2

REPORT INFORMATION
  Report Type: 
  Country: None (occurrence: None)
  Receive Date: 20100520
  Receipt Date: 20100520
  Transmission Date: 20101027
  Serious: No
  Sender: FDA-Public Use
  Company Number: None

PATIENT
  Age: 77 Year
  Sex: Female
  Weight: 97.5234 kg

DRUGS (2)
  1. VYTORIN [Suspect]
     Indication: BLOOD CHOLESTEROL
     Dosage: 10/20 MG 1 TAB DAILY IN P.M.
     Dates: start: 20091119, end: 20091129
  2. VYTORIN [Suspect]
     Indication: BLOOD TRIGLYCERIDES INCREASED
     Dosage: 10/20 MG 1 TAB DAILY IN P.M.
     Dates: start: 20091119, end: 20091129

REACTIONS (1)
  - MYALGIA [None]
